FAERS Safety Report 16042250 (Version 1)
Quarter: 2019Q1

REPORT INFORMATION
  Report Type: Spontaneous
  Country: US (occurrence: US)
  Receive Date: 20190306
  Receipt Date: 20190306
  Transmission Date: 20190418
  Serious: No
  Sender: FDA-Public Use
  Company Number: US-AKORN PHARMACEUTICALS-2018AKN01043

PATIENT
  Age: 46 Year
  Sex: Female
  Weight: 91 kg

DRUGS (3)
  1. RAMIPRIL. [Concomitant]
     Active Substance: RAMIPRIL
  2. MYORISAN [Suspect]
     Active Substance: ISOTRETINOIN
     Indication: GRANULOMA ANNULARE
     Dosage: 40 MG, 1X/DAY
     Route: 048
     Dates: start: 20180613, end: 20180711
  3. LOESTRIN NOS [Concomitant]
     Active Substance: ETHINYL ESTRADIOL\NORETHINDRONE ACETATE

REACTIONS (2)
  - Drug ineffective for unapproved indication [Not Recovered/Not Resolved]
  - Granuloma annulare [Recovered/Resolved]

NARRATIVE: CASE EVENT DATE: 2018
